FAERS Safety Report 6302798-4 (Version None)
Quarter: 2009Q3

REPORT INFORMATION
  Report Type: 
  Country: None (occurrence: None)
  Receive Date: 20090810
  Receipt Date: 20090515
  Transmission Date: 20100115
  Serious: No
  Sender: FDA-Public Use
  Company Number: A0784607A

PATIENT
  Sex: Male

DRUGS (2)
  1. ALTABAX [Suspect]
     Indication: WOUND
     Route: 061
  2. UNKNOWN [Concomitant]

REACTIONS (1)
  - APPLICATION SITE PAIN [None]
